FAERS Safety Report 11583531 (Version 1)
Quarter: 2015Q4

REPORT INFORMATION
  Report Type: Spontaneous
  Country: US (occurrence: US)
  Receive Date: 20151001
  Receipt Date: 20151001
  Transmission Date: 20160304
  Serious: No
  Sender: FDA-Public Use
  Company Number: US-TEVA-596997ACC

PATIENT
  Sex: Female

DRUGS (1)
  1. PLAN B ONE-STEP [Suspect]
     Active Substance: LEVONORGESTREL
     Indication: POST COITAL CONTRACEPTION
     Dates: start: 201509, end: 201509

REACTIONS (7)
  - Urine abnormality [Not Recovered/Not Resolved]
  - Micturition urgency [Not Recovered/Not Resolved]
  - Rash pruritic [Unknown]
  - Back pain [Not Recovered/Not Resolved]
  - Pollakiuria [Not Recovered/Not Resolved]
  - Hypomenorrhoea [Recovered/Resolved]
  - Abdominal pain [Not Recovered/Not Resolved]
